FAERS Safety Report 6345271-X (Version None)
Quarter: 2009Q3

REPORT INFORMATION
  Report Type: 
  Country: None (occurrence: None)
  Receive Date: 20090821
  Receipt Date: 20090626
  Transmission Date: 20100115
  Serious: No
  Sender: FDA-Public Use
  Company Number: 8048356

PATIENT
  Age: 23 Year
  Sex: Male
  Weight: 68 kg

DRUGS (4)
  1. CIMZIA [Suspect]
     Indication: COLITIS ULCERATIVE
     Dosage: 400 MG SC
     Route: 058
     Dates: start: 20090227
  2. RODOGYL [Concomitant]
  3. ZYRTEC-D 12 HOUR [Concomitant]
  4. PURINETHOL [Concomitant]

REACTIONS (1)
  - BODY TEMPERATURE INCREASED [None]
